FAERS Safety Report 8172088-6 (Version None)
Quarter: 2012Q1

REPORT INFORMATION
  Report Type: 
  Country: None (occurrence: None)
  Receive Date: 20120228
  Receipt Date: 20120222
  Transmission Date: 20120608
  Serious: No
  Sender: FDA-Public Use
  Company Number: US-PFIZER INC-2012048634

PATIENT
  Sex: Female
  Weight: 68.027 kg

DRUGS (8)
  1. PROZAC [Concomitant]
     Dosage: 60 MG, DAILY
  2. CELEBREX [Concomitant]
     Indication: ARTHRITIS
     Dosage: 200 MG, DAILY
  3. GEODON [Concomitant]
     Indication: ANTIDEPRESSANT THERAPY
     Dosage: 20 MG, DAILY
  4. PRISTIQ [Suspect]
     Dosage: 100MG AND 150MG ON ALTERNATIVE DAYS
  5. TRAZODONE [Concomitant]
     Indication: SLEEP DISORDER
     Dosage: 75 MG, DAILY
  6. PRISTIQ [Suspect]
     Dosage: 150 MG, DAILY
  7. PRISTIQ [Suspect]
     Indication: DEPRESSION
     Dosage: 100 MG, DAILY
     Dates: start: 20110101
  8. EVISTA [Concomitant]
     Indication: BONE DISORDER
     Dosage: 60 MG, DAILY

REACTIONS (4)
  - DRUG INTOLERANCE [None]
  - DRUG INEFFECTIVE [None]
  - FEELING ABNORMAL [None]
  - BALANCE DISORDER [None]
